FAERS Safety Report 5508878-5 (Version None)
Quarter: 2007Q4

REPORT INFORMATION
  Report Type: 
  Country: None (occurrence: None)
  Receive Date: 20071031
  Receipt Date: 20070829
  Transmission Date: 20080405
  Serious: Yes (Hospitalization)
  Sender: FDA-Public Use
  Company Number: 200712860BWH

PATIENT
  Age: 76 Year
  Sex: Female

DRUGS (7)
  1. NEXAVAR [Suspect]
     Indication: HEPATIC NEOPLASM MALIGNANT
     Dosage: 400 MG, BID, ORAL
     Route: 048
     Dates: start: 20070730, end: 20070807
  2. NEXAVAR [Suspect]
     Indication: HEPATIC NEOPLASM MALIGNANT
     Dosage: 400 MG, BID, ORAL
     Route: 048
     Dates: start: 20070810, end: 20070824
  3. OXYCODONE HCL [Concomitant]
  4. REGLAN [Concomitant]
  5. DARVOCET [Concomitant]
  6. PHENERGAN [Concomitant]
  7. PRIMACOR [Concomitant]

REACTIONS (14)
  - ASTHENIA [None]
  - BLISTER [None]
  - CHEILITIS [None]
  - DIARRHOEA [None]
  - DRY EYE [None]
  - EXOPHTHALMOS [None]
  - EYE DISCHARGE [None]
  - EYE SWELLING [None]
  - GASTROINTESTINAL HAEMORRHAGE [None]
  - GASTROINTESTINAL ULCER [None]
  - GASTROOESOPHAGEAL REFLUX DISEASE [None]
  - RASH GENERALISED [None]
  - SKIN LESION [None]
  - STOMATITIS [None]
